FAERS Safety Report 14701295 (Version 1)
Quarter: 2018Q1

REPORT INFORMATION
  Report Type: Spontaneous
  Country: US (occurrence: US)
  Receive Date: 20180328
  Receipt Date: 20180328
  Transmission Date: 20180509
  Serious: Yes (Other)
  Sender: FDA-Public Use
  Company Number: None

PATIENT
  Age: 69 Year
  Sex: Male
  Weight: 99.79 kg

DRUGS (1)
  1. CAPECITABINE. [Suspect]
     Active Substance: CAPECITABINE
     Dosage: 1T MORNING?2T EVENING
     Route: 048
     Dates: start: 20161104

REACTIONS (2)
  - Dizziness [None]
  - Haemorrhage [None]

NARRATIVE: CASE EVENT DATE: 20180112
